FAERS Safety Report 17564355 (Version 1)
Quarter: 2020Q1

REPORT INFORMATION
  Report Type: Spontaneous
  Country: US (occurrence: US)
  Receive Date: 20200320
  Receipt Date: 20200320
  Transmission Date: 20200409
  Serious: Yes (Disabling)
  Sender: FDA-Public Use
  Company Number: US-ASTRAZENECA-2020SE38939

PATIENT
  Sex: Female

DRUGS (2)
  1. ZOMIG [Suspect]
     Active Substance: ZOLMITRIPTAN
     Dosage: 6 TREATMENT PER MONTH FROM LAST 1-2 YEARS
     Route: 045
  2. RELPAX [Suspect]
     Active Substance: ELETRIPTAN HYDROBROMIDE
     Route: 065

REACTIONS (4)
  - Disability [Unknown]
  - Migraine [Unknown]
  - Product dose omission [Unknown]
  - Epistaxis [Unknown]
